FAERS Safety Report 8973910 (Version 1)
Quarter: 2012Q4

REPORT INFORMATION
  Report Type: 
  Country: JP (occurrence: JP)
  Receive Date: 20121218
  Receipt Date: 20121218
  Transmission Date: 20130627
  Serious: Yes (Hospitalization)
  Sender: FDA-Public Use
  Company Number: JP-GLAXOSMITHKLINE-B0852505A

PATIENT
  Age: 72 Year
  Sex: Male

DRUGS (1)
  1. ALKERAN [Suspect]
     Indication: AMYLOIDOSIS
     Route: 065

REACTIONS (6)
  - Plasma cell myeloma [Unknown]
  - Thrombocytopenia [Recovering/Resolving]
  - Blast cells present [Unknown]
  - Acute megakaryocytic leukaemia [Unknown]
  - Antineutrophil cytoplasmic antibody negative [Unknown]
  - Karyotype analysis abnormal [Unknown]
